FAERS Safety Report 17251051 (Version 3)
Quarter: 2020Q1

REPORT INFORMATION
  Report Type: Spontaneous
  Country: FI (occurrence: FI)
  Receive Date: 20200109
  Receipt Date: 20200120
  Transmission Date: 20200409
  Serious: No
  Sender: FDA-Public Use
  Company Number: FI-GLAXOSMITHKLINE-FI2020003526

PATIENT
  Sex: Female

DRUGS (2)
  1. NICORETTE [Suspect]
     Active Substance: NICOTINE
     Indication: PRODUCT USED FOR UNKNOWN INDICATION
     Dosage: UNK
     Route: 065
  2. NICORETTE [Suspect]
     Active Substance: NICOTINE
     Indication: PRODUCT USED FOR UNKNOWN INDICATION
     Dosage: UNK
     Route: 065

REACTIONS (4)
  - Intentional product use issue [Not Recovered/Not Resolved]
  - Arthralgia [Unknown]
  - Overdose [Not Recovered/Not Resolved]
  - Nicotine dependence [Unknown]
